FAERS Safety Report 8902291 (Version 2)
Quarter: 2013Q1

REPORT INFORMATION
  Report Type: Spontaneous
  Country: HR (occurrence: HR)
  Receive Date: 20121112
  Receipt Date: 20130318
  Transmission Date: 20140127
  Serious: Yes (Hospitalization)
  Sender: FDA-Public Use
  Company Number: HR-JNJFOC-20101203742

PATIENT
  Age: 40 Year
  Sex: Male

DRUGS (5)
  1. RISPOLEPT CONSTA [Suspect]
     Indication: SCHIZOPHRENIA
     Route: 065
     Dates: start: 201201
  2. RISPOLEPT CONSTA [Suspect]
     Indication: SCHIZOPHRENIA
     Route: 065
     Dates: start: 200911, end: 201111
  3. RISPOLEPT CONSTA [Suspect]
     Indication: SCHIZOPHRENIA
     Route: 065
     Dates: start: 200710, end: 200911
  4. LEPONEX [Concomitant]
     Dosage: 0-0-50 MG
     Route: 065
  5. DIAZEPAM [Concomitant]
     Dosage: 5-5-10 MG
     Route: 065

REACTIONS (5)
  - Hip fracture [Unknown]
  - Leg amputation [Unknown]
  - Apathy [Recovered/Resolved]
  - Somnolence [Recovered/Resolved]
  - Weight increased [Recovering/Resolving]
